FAERS Safety Report 19513322 (Version 1)
Quarter: 2021Q3

REPORT INFORMATION
  Report Type: Spontaneous
  Country: JP (occurrence: JP)
  Receive Date: 20210709
  Receipt Date: 20210709
  Transmission Date: 20211014
  Serious: Yes (Hospitalization)
  Sender: FDA-Public Use
  Company Number: JP-ENDO PHARMACEUTICALS INC-2021-010077

PATIENT
  Age: 35 Year
  Sex: Male

DRUGS (1)
  1. AVEED [Suspect]
     Active Substance: TESTOSTERONE UNDECANOATE
     Indication: GENDER DYSPHORIA
     Dosage: UNK UNKNOWN, Q3W
     Route: 051

REACTIONS (2)
  - Off label use [Unknown]
  - Chronic inflammatory demyelinating polyradiculoneuropathy [Recovering/Resolving]
